FAERS Safety Report 4904907-8 (Version None)
Quarter: 2006Q1

REPORT INFORMATION
  Report Type: 
  Country: None (occurrence: None)
  Receive Date: 20060207
  Receipt Date: 20060207
  Transmission Date: 20060701
  Serious: Yes (Other)
  Sender: FDA-Public Use
  Company Number: None

PATIENT
  Age: 67 Year
  Sex: Male
  Weight: 91.4452 kg

DRUGS (2)
  1. ETANERCEPT     25 MG PER VIAL     AMGEN [Suspect]
     Indication: MYOSITIS
     Dosage: 50MG   WEEKLY   SQ
     Route: 058
     Dates: start: 20050803, end: 20050803
  2. PLACEBO [Suspect]

REACTIONS (1)
  - SQUAMOUS CELL CARCINOMA [None]
